FAERS Safety Report 5532774-0 (Version None)
Quarter: 2007Q4

REPORT INFORMATION
  Report Type: 
  Country: None (occurrence: None)
  Receive Date: 20071130
  Receipt Date: 20071130
  Transmission Date: 20080405
  Serious: Yes (Other)
  Sender: FDA-Public Use
  Company Number: None

PATIENT
  Age: 49 Year
  Sex: Female
  Weight: 68 kg

DRUGS (6)
  1. XYREM [Suspect]
     Indication: DEPRESSION
     Dosage: 2.25 GMS TWICE IN SLEEP PO; 5 NIGHTS TOTAL
     Route: 048
     Dates: start: 20071027, end: 20071101
  2. XYREM [Suspect]
     Indication: FATIGUE
     Dosage: 2.25 GMS TWICE IN SLEEP PO; 5 NIGHTS TOTAL
     Route: 048
     Dates: start: 20071027, end: 20071101
  3. XYREM [Suspect]
     Indication: FIBROMYALGIA
     Dosage: 2.25 GMS TWICE IN SLEEP PO; 5 NIGHTS TOTAL
     Route: 048
     Dates: start: 20071027, end: 20071101
  4. XYREM [Suspect]
     Indication: INSOMNIA
     Dosage: 2.25 GMS TWICE IN SLEEP PO; 5 NIGHTS TOTAL
     Route: 048
     Dates: start: 20071027, end: 20071101
  5. XYREM [Suspect]
     Indication: PAIN
     Dosage: 2.25 GMS TWICE IN SLEEP PO; 5 NIGHTS TOTAL
     Route: 048
     Dates: start: 20071027, end: 20071101
  6. XYREM [Suspect]
     Indication: SOMNOLENCE
     Dosage: 2.25 GMS TWICE IN SLEEP PO; 5 NIGHTS TOTAL
     Route: 048
     Dates: start: 20071027, end: 20071101

REACTIONS (7)
  - AGITATION [None]
  - ANXIETY [None]
  - FLIGHT OF IDEAS [None]
  - HALLUCINATION, AUDITORY [None]
  - PARANOIA [None]
  - PSYCHOTIC DISORDER [None]
  - REFUSAL OF TREATMENT BY PATIENT [None]
